FAERS Safety Report 20568935 (Version 1)
Quarter: 2022Q1

REPORT INFORMATION
  Report Type: Spontaneous
  Country: US (occurrence: None)
  Receive Date: 20220308
  Receipt Date: 20220308
  Transmission Date: 20220423
  Serious: No
  Sender: FDA-Public Use
  Company Number: US-ROCHE-2868934

PATIENT
  Age: 52 Year
  Sex: Female

DRUGS (3)
  1. PHESGO [Suspect]
     Active Substance: HYALURONIDASE-ZZXF\PERTUZUMAB\TRASTUZUMAB
     Indication: Breast cancer metastatic
     Route: 058
     Dates: start: 202009
  2. ZOLADEX [Concomitant]
     Active Substance: GOSERELIN ACETATE
     Indication: Breast cancer metastatic
  3. FASLODEX [Concomitant]
     Active Substance: FULVESTRANT
     Indication: Breast cancer metastatic

REACTIONS (1)
  - Pain in extremity [Not Recovered/Not Resolved]

NARRATIVE: CASE EVENT DATE: 20200901
